FAERS Safety Report 6074800-9 (Version None)
Quarter: 2009Q1

REPORT INFORMATION
  Report Type: 
  Country: None (occurrence: None)
  Receive Date: 20090212
  Receipt Date: 20090209
  Transmission Date: 20090719
  Serious: Yes (Hospitalization)
  Sender: FDA-Public Use
  Company Number: US-BAYER-200910672NA

PATIENT
  Sex: Male
  Weight: 136 kg

DRUGS (3)
  1. AVELOX [Suspect]
     Indication: DRUG USE FOR UNKNOWN INDICATION
     Dosage: UNIT DOSE: 400 MG
     Dates: start: 20081228
  2. LANTUS [Concomitant]
  3. METFORMIN [Concomitant]

REACTIONS (7)
  - ANAPHYLACTIC REACTION [None]
  - ANXIETY [None]
  - COUGH [None]
  - DYSPNOEA [None]
  - PRURITUS [None]
  - RASH PAPULAR [None]
  - RESTLESSNESS [None]
